FAERS Safety Report 7115639-2 (Version None)
Quarter: 2010Q4

REPORT INFORMATION
  Report Type: 
  Country: None (occurrence: None)
  Receive Date: 20101122
  Receipt Date: 20101112
  Transmission Date: 20110411
  Serious: Yes (Other)
  Sender: FDA-Public Use
  Company Number: US-PFIZER INC-2010147461

PATIENT
  Sex: Female
  Weight: 98 kg

DRUGS (13)
  1. LIPITOR [Suspect]
     Indication: BLOOD CHOLESTEROL INCREASED
     Dosage: 10 MG, 1X/DAY
     Route: 048
     Dates: end: 20101001
  2. LISINOPRIL [Concomitant]
     Indication: CARDIAC DISORDER
     Dosage: 40 MG, 1X/DAY
  3. HYDROCODONE [Concomitant]
     Dosage: 20 MG, 1X/DAY
  4. ZOLOFT [Concomitant]
     Dosage: 100 MG, 1X/DAY
  5. COZAAR [Concomitant]
     Dosage: 100 MG, 1X/DAY
  6. NAPROXEN [Concomitant]
     Dosage: 500 MG, 2X/DAY
  7. ALLEGRA [Concomitant]
     Dosage: 180 MG, 1X/DAY
  8. PRILOSEC [Concomitant]
     Dosage: 20 MG, 2X/DAY
  9. ATENOLOL [Concomitant]
     Dosage: 50 MG, 1X/DAY
  10. ACETYLSALICYLIC ACID [Concomitant]
     Dosage: UNK
  11. TIAZAC [Concomitant]
     Dosage: 360 MG, 1X/DAY
  12. LASIX [Concomitant]
     Dosage: 20 MG, 3X/DAY
  13. NOVOLOG [Concomitant]
     Indication: DIABETES MELLITUS
     Dosage: 60 MG, 1X/DAY

REACTIONS (1)
  - THYROID DISORDER [None]
